FAERS Safety Report 20053952 (Version 11)
Quarter: 2022Q4

REPORT INFORMATION
  Report Type: Spontaneous
  Country: CA (occurrence: CA)
  Receive Date: 20211110
  Receipt Date: 20221229
  Transmission Date: 20230113
  Serious: Yes (Other)
  Sender: FDA-Public Use
  Company Number: CA-PFIZER INC-202101116930

PATIENT
  Age: 45 Year
  Sex: Female
  Weight: 82 kg

DRUGS (8)
  1. RUXIENCE [Suspect]
     Active Substance: RITUXIMAB-PVVR
     Indication: Rheumatoid arthritis
     Dosage: 1000 MG ON DAY 1 AND DAY 15 AND SUBSEQUENT TREATMENT ON DAY 1
     Route: 042
     Dates: start: 20211013, end: 20211013
  2. RUXIENCE [Suspect]
     Active Substance: RITUXIMAB-PVVR
     Dosage: 1000 MG ON DAY 1 AND DAY 15 AND SUBSEQUENT TREATMENT ON DAY 1
     Route: 042
     Dates: start: 20211013, end: 20211028
  3. RUXIENCE [Suspect]
     Active Substance: RITUXIMAB-PVVR
     Dosage: 1000 MG ON DAY 1 AND DAY 15 AND SUBSEQUENT TREATMENT ON DAY 1
     Route: 042
     Dates: start: 20211028
  4. RUXIENCE [Suspect]
     Active Substance: RITUXIMAB-PVVR
     Dosage: 1000 MG ON DAY 1 AND DAY 15 AND SUBSEQUENT TREATMENT ON DAY 1
     Route: 042
     Dates: start: 20220413, end: 20220413
  5. RUXIENCE [Suspect]
     Active Substance: RITUXIMAB-PVVR
     Dosage: 1000 MG ON DAY 1 AND DAY 15 AND SUBSEQUENT TREATMENT ON DAY 1
     Route: 042
     Dates: start: 20220413, end: 20220427
  6. RUXIENCE [Suspect]
     Active Substance: RITUXIMAB-PVVR
     Dosage: 1000 MG ON DAY 1 AND DAY 15 AND SUBSEQUENT TREATMENT ON DAY 1
     Route: 042
     Dates: start: 20220427
  7. RUXIENCE [Suspect]
     Active Substance: RITUXIMAB-PVVR
     Dosage: 1 G, 1 DOSE
     Route: 042
     Dates: start: 20221221, end: 20221221
  8. PANTOPRAZOLE SODIUM [Concomitant]
     Active Substance: PANTOPRAZOLE SODIUM
     Dosage: UNK

REACTIONS (19)
  - Thrombosis [Unknown]
  - Rash erythematous [Recovering/Resolving]
  - Lacrimation increased [Recovered/Resolved]
  - Hysterectomy [Unknown]
  - Weight increased [Unknown]
  - Rash pruritic [Recovering/Resolving]
  - Rhinorrhoea [Recovered/Resolved]
  - General physical condition abnormal [Unknown]
  - Off label use [Unknown]
  - Intentional product use issue [Unknown]
  - Off label use [Unknown]
  - Off label use [Unknown]
  - Hot flush [Unknown]
  - Feeling hot [Unknown]
  - Hyperhidrosis [Unknown]
  - Weight decreased [Unknown]
  - Flushing [Unknown]
  - Nausea [Recovered/Resolved]
  - Dyspepsia [Unknown]

NARRATIVE: CASE EVENT DATE: 20211001
